FAERS Safety Report 7582411-9 (Version None)
Quarter: 2011Q2

REPORT INFORMATION
  Report Type: 
  Country: None (occurrence: None)
  Receive Date: 20110630
  Receipt Date: 20110622
  Transmission Date: 20111010
  Serious: Yes (Other)
  Sender: FDA-Public Use
  Company Number: US-JNJFOC-20110611320

PATIENT
  Sex: Male

DRUGS (2)
  1. EXTRA STRENGTH TYLENOL PM [Suspect]
     Indication: PRODUCT USED FOR UNKNOWN INDICATION
     Route: 065
  2. EXTRA STRENGTH TYLENOL PM [Suspect]
     Route: 065

REACTIONS (1)
  - SUICIDE ATTEMPT [None]
